FAERS Safety Report 8482645-5 (Version None)
Quarter: 2012Q3

REPORT INFORMATION
  Report Type: 
  Country: None (occurrence: None)
  Receive Date: 20120702
  Receipt Date: 20120627
  Transmission Date: 20120928
  Serious: Yes (Hospitalization, Disabling, Other)
  Sender: FDA-Public Use
  Company Number: US-MERCK-1203USA03480

PATIENT
  Age: 68 Year
  Sex: Female

DRUGS (7)
  1. ATROVENT [Concomitant]
     Indication: ASTHMA
     Route: 065
     Dates: start: 20010101
  2. FOSAMAX [Suspect]
     Route: 048
     Dates: start: 20080218, end: 20100308
  3. FOSAMAX [Suspect]
     Indication: OSTEOPOROSIS
     Route: 048
     Dates: start: 20010101, end: 20080121
  4. ALBUTEROL [Concomitant]
     Indication: ASTHMA
     Route: 065
     Dates: start: 20010101
  5. ADVAIR DISKUS 100/50 [Concomitant]
     Indication: ASTHMA
     Route: 065
     Dates: start: 20010101
  6. SPIRIVA [Concomitant]
     Indication: ASTHMA
     Route: 065
     Dates: start: 20010101
  7. THEOPHYLLINE [Concomitant]
     Indication: ASTHMA
     Route: 065
     Dates: start: 20010101

REACTIONS (17)
  - HIP FRACTURE [None]
  - OSTEONECROSIS [None]
  - SPINAL FRACTURE [None]
  - STRESS FRACTURE [None]
  - HYPERTENSION [None]
  - CHRONIC OBSTRUCTIVE PULMONARY DISEASE [None]
  - ANXIETY [None]
  - BLOOD CHOLESTEROL INCREASED [None]
  - OSTEOPOROSIS [None]
  - RIB FRACTURE [None]
  - SKIN CANCER [None]
  - ROAD TRAFFIC ACCIDENT [None]
  - LOW TURNOVER OSTEOPATHY [None]
  - EMPHYSEMA [None]
  - FEMUR FRACTURE [None]
  - DEPRESSION [None]
  - FALL [None]
